FAERS Safety Report 9200663 (Version 1)
Quarter: 2013Q1

REPORT INFORMATION
  Report Type: Report from Study
  Country: NO (occurrence: NO)
  Receive Date: 20130331
  Receipt Date: 20130331
  Transmission Date: 20140127
  Serious: Yes (Other)
  Sender: FDA-Public Use
  Company Number: NO-TEVA-394728ISR

PATIENT
  Sex: Female

DRUGS (4)
  1. LEVETIRACETAM [Suspect]
     Indication: EPILEPSY
     Dosage: 4000 MILLIGRAM DAILY;
  2. LEVETIRACETAM [Suspect]
     Indication: EPILEPSY
     Dosage: DOSE CHANGE
  3. CARBAMAZEPINE [Concomitant]
     Indication: EPILEPSY
  4. CARBAMAZEPINE [Concomitant]
     Indication: EPILEPSY
     Dosage: DOSE CHANGE

REACTIONS (2)
  - Abortion spontaneous [Unknown]
  - Overdose [Unknown]
